FAERS Safety Report 10217064 (Version 1)
Quarter: 2014Q2

REPORT INFORMATION
  Report Type: Spontaneous
  Country: US (occurrence: US)
  Receive Date: 20140604
  Receipt Date: 20140604
  Transmission Date: 20141212
  Serious: Yes (Other)
  Sender: FDA-Public Use
  Company Number: ALCN2014US003288

PATIENT
  Age: 64 Year
  Sex: Male

DRUGS (2)
  1. GENTEAL MODERATE LUBRICANT EYE DROPS [Suspect]
     Indication: EYE IRRITATION
     Dosage: 1 GTT, QD
     Route: 047
     Dates: start: 20140519, end: 20140529
  2. HERBAL EXTRACT NOS [Concomitant]
     Dosage: UNK
     Route: 048

REACTIONS (3)
  - Depression suicidal [Recovering/Resolving]
  - Hypoacusis [Not Recovered/Not Resolved]
  - Ear discomfort [Not Recovered/Not Resolved]
